FAERS Safety Report 18981246 (Version 3)
Quarter: 2021Q2

REPORT INFORMATION
  Report Type: Spontaneous
  Country: US (occurrence: US)
  Receive Date: 20210308
  Receipt Date: 20210506
  Transmission Date: 20210717
  Serious: Yes (Death, Hospitalization, Other)
  Sender: FDA-Public Use
  Company Number: US-ELI_LILLY_AND_COMPANY-US202103001954

PATIENT
  Age: 73 Year
  Sex: Female
  Weight: 139.6 kg

DRUGS (6)
  1. HEPARIN [Concomitant]
     Active Substance: HEPARIN SODIUM
     Dosage: UNK UNK, UNKNOWN
     Route: 065
     Dates: start: 20210223
  2. BARICITINIB. [Suspect]
     Active Substance: BARICITINIB
     Indication: COVID-19
     Dosage: 4 MG, DAILY
     Route: 048
     Dates: start: 20210216, end: 20210222
  3. REMDESIVIR. [Concomitant]
     Active Substance: REMDESIVIR
     Indication: PRODUCT USED FOR UNKNOWN INDICATION
     Dosage: UNK, UNKNOWN
     Route: 065
     Dates: start: 20210211, end: 20210216
  4. DEXAMETHASONE. [Concomitant]
     Active Substance: DEXAMETHASONE
     Indication: PRODUCT USED FOR UNKNOWN INDICATION
     Dosage: UNK, UNKNOWN
     Route: 065
     Dates: start: 20210211, end: 20210218
  5. HEPARIN [Concomitant]
     Active Substance: HEPARIN SODIUM
     Indication: THROMBOSIS PROPHYLAXIS
     Dosage: 7500 U, TID
     Route: 058
     Dates: end: 20210222
  6. METHYLPREDNISOLONE. [Concomitant]
     Active Substance: METHYLPREDNISOLONE
     Indication: PRODUCT USED FOR UNKNOWN INDICATION
     Dosage: UNK, UNKNOWN
     Route: 065
     Dates: start: 20210218, end: 20210224

REACTIONS (2)
  - Acute respiratory failure [Fatal]
  - Deep vein thrombosis [Unknown]

NARRATIVE: CASE EVENT DATE: 20210222
